FAERS Safety Report 7758977-2 (Version None)
Quarter: 2011Q3

REPORT INFORMATION
  Report Type: 
  Country: None (occurrence: None)
  Receive Date: 20110916
  Receipt Date: 20110916
  Transmission Date: 20111222
  Serious: Yes (Other)
  Sender: FDA-Public Use
  Company Number: None

PATIENT
  Sex: Male
  Weight: 119.7496 kg

DRUGS (3)
  1. FLUTICASONE PROPIONATE [Suspect]
     Indication: SINUSITIS
     Dosage: 2 SPRAY 1X DAILY NOSTRILS
     Dates: start: 20110125, end: 20110309
  2. FLUTICASONE PROPIONATE [Suspect]
     Indication: RHINITIS ALLERGIC
     Dosage: 2 SPRAY 1X DAILY NOSTRILS
     Dates: start: 20110125, end: 20110309
  3. NASONEX [Suspect]

REACTIONS (2)
  - OEDEMA [None]
  - NASAL DISCOMFORT [None]
